FAERS Safety Report 26209001 (Version 1)
Quarter: 2025Q4

REPORT INFORMATION
  Report Type: Spontaneous
  Country: US (occurrence: US)
  Receive Date: 20251229
  Receipt Date: 20251229
  Transmission Date: 20260117
  Serious: Yes (Other)
  Sender: INCYTE
  Company Number: US-INCYTE CORPORATION-2025IN014422

PATIENT
  Age: 65 Year

DRUGS (1)
  1. JAKAFI [Suspect]
     Active Substance: RUXOLITINIB
     Indication: Haemoglobinopathy
     Dosage: 10 MILLIGRAM, BID
     Route: 061

REACTIONS (3)
  - Retinal detachment [Recovering/Resolving]
  - Splenomegaly [Unknown]
  - Off label use [Unknown]
